FAERS Safety Report 14307242 (Version 1)
Quarter: 2017Q4

REPORT INFORMATION
  Report Type: Spontaneous
  Country: US (occurrence: US)
  Receive Date: 20171219
  Receipt Date: 20171219
  Transmission Date: 20180321
  Serious: Yes (Other)
  Sender: FDA-Public Use
  Company Number: None

PATIENT
  Age: 30 Year
  Sex: Male
  Weight: 268.2 kg

DRUGS (1)
  1. TELAVANCIN [Suspect]
     Active Substance: TELAVANCIN
     Indication: CELLULITIS
     Dosage: STRENGTH 250-750 MG SIZE VIALS PER G  GRAM(S)
     Route: 042
     Dates: start: 20170707, end: 20170816

REACTIONS (1)
  - Varicose vein [None]

NARRATIVE: CASE EVENT DATE: 20171101
